FAERS Safety Report 9670924 (Version 1)
Quarter: 2013Q4

REPORT INFORMATION
  Report Type: Report from Study
  Country: CA (occurrence: CA)
  Receive Date: 20131106
  Receipt Date: 20131106
  Transmission Date: 20140711
  Serious: Yes (Death)
  Sender: FDA-Public Use
  Company Number: PHHY2013CA125528

PATIENT
  Age: 87 Year
  Sex: Male

DRUGS (3)
  1. ACLASTA [Suspect]
     Indication: OSTEOPOROSIS
     Dosage: UNK
     Route: 042
     Dates: start: 20100913
  2. ACLASTA [Suspect]
     Dosage: UNK
     Route: 042
     Dates: start: 20110927
  3. ACLASTA [Suspect]
     Dosage: UNK
     Route: 042
     Dates: start: 20120912

REACTIONS (1)
  - Death [Fatal]
